FAERS Safety Report 21532492 (Version 3)
Quarter: 2022Q4

REPORT INFORMATION
  Report Type: Report from Study
  Country: US (occurrence: US)
  Receive Date: 20221101
  Receipt Date: 20221110
  Transmission Date: 20230113
  Serious: Yes (Hospitalization, Other)
  Sender: FDA-Public Use
  Company Number: US-ABBVIE-4178557

PATIENT
  Age: 74 Year
  Sex: Male
  Weight: 90.718 kg

DRUGS (1)
  1. CREON [Suspect]
     Active Substance: PANCRELIPASE AMYLASE\PANCRELIPASE LIPASE\PANCRELIPASE PROTEASE
     Indication: Pancreatic enzymes decreased
     Dosage: FORM STRENGTH: 36000 UNIT
     Route: 048
     Dates: start: 202209

REACTIONS (3)
  - Hospitalisation [Not Recovered/Not Resolved]
  - Heart rate irregular [Unknown]
  - Diarrhoea [Recovering/Resolving]

NARRATIVE: CASE EVENT DATE: 20221025
